FAERS Safety Report 17730196 (Version 1)
Quarter: 2020Q2

REPORT INFORMATION
  Report Type: Spontaneous
  Country: FR (occurrence: FR)
  Receive Date: 20200430
  Receipt Date: 20200430
  Transmission Date: 20200714
  Serious: Yes (Hospitalization)
  Sender: FDA-Public Use
  Company Number: FR-ELI_LILLY_AND_COMPANY-FR202004011266

PATIENT
  Age: 64 Year
  Sex: Female
  Weight: 71 kg

DRUGS (5)
  1. PEMBROLIZUMAB. [Suspect]
     Active Substance: PEMBROLIZUMAB
     Indication: LUNG ADENOCARCINOMA
     Dosage: C1 13/12/2019; C2 06/01/2019; C3 27/01/2020; C4 17/02/2020
     Route: 041
     Dates: start: 20191213, end: 20200217
  2. TAHOR [Concomitant]
     Active Substance: ATORVASTATIN CALCIUM
     Dosage: UNK UNK, UNKNOWN
     Route: 048
     Dates: start: 20100101, end: 20191210
  3. COVERAM [Concomitant]
     Active Substance: AMLODIPINE\PERINDOPRIL
     Dosage: UNK UNK, UNKNOWN
     Route: 048
     Dates: start: 20100101, end: 20191210
  4. CISPLATINE [Suspect]
     Active Substance: CISPLATIN
     Indication: LUNG ADENOCARCINOMA
     Dosage: C1 13/12/2019; C2 06/01/2019; C3 27/01/2020 (R?DUCTION DE 10%); C4 17/02/2020 (R?DUCTION DE 20%)
     Route: 041
     Dates: start: 20191213, end: 20200217
  5. PEMETREXED. [Suspect]
     Active Substance: PEMETREXED
     Indication: LUNG ADENOCARCINOMA
     Dosage: C1 13/12/2019; C2 06/01/2019; C3 27/01/2020; C4 17/02/2020
     Route: 041
     Dates: start: 20191213, end: 20200217

REACTIONS (3)
  - Renal tubular necrosis [Not Recovered/Not Resolved]
  - Pancytopenia [Unknown]
  - Off label use [Unknown]

NARRATIVE: CASE EVENT DATE: 20191213
